FAERS Safety Report 14599255 (Version 1)
Quarter: 2018Q1

REPORT INFORMATION
  Report Type: Spontaneous
  Country: IN (occurrence: IN)
  Receive Date: 20180305
  Receipt Date: 20180305
  Transmission Date: 20180509
  Serious: Yes (Hospitalization, Other)
  Sender: FDA-Public Use
  Company Number: IN-MYLANLABS-2018M1013390

PATIENT
  Age: 27 Year
  Sex: Male

DRUGS (4)
  1. IFOSFAMIDE. [Suspect]
     Active Substance: IFOSFAMIDE
     Indication: ALVEOLAR RHABDOMYOSARCOMA
     Dosage: RECEIVED ONE CYCLE OF NEOADJUVANT CHEMOTHERAPY (VIME)
     Route: 065
  2. ETOPOSIDE. [Suspect]
     Active Substance: ETOPOSIDE
     Indication: ALVEOLAR RHABDOMYOSARCOMA
     Dosage: RECEIVED ONE CYCLE OF NEOADJUVANT CHEMOTHERAPY (VIME)
     Route: 065
  3. VINCRISTINE [Suspect]
     Active Substance: VINCRISTINE
     Indication: ALVEOLAR RHABDOMYOSARCOMA
     Dosage: RECEIVED ONE CYCLE OF NEOADJUVANT CHEMOTHERAPY (VIME)
     Route: 065
  4. MESNA. [Concomitant]
     Active Substance: MESNA
     Indication: PRODUCT USED FOR UNKNOWN INDICATION
     Dosage: RECEIVED IN ONE CYCLE OF NEOADJUVANT CHEMOTHERAPY (VIME)
     Route: 065

REACTIONS (3)
  - Pyomyositis [Recovering/Resolving]
  - Abscess limb [Recovering/Resolving]
  - Necrotising myositis [Recovering/Resolving]
